FAERS Safety Report 22082718 (Version 1)
Quarter: 2023Q1

REPORT INFORMATION
  Report Type: Spontaneous
  Country: US (occurrence: None)
  Receive Date: 20230310
  Receipt Date: 20230310
  Transmission Date: 20230417
  Serious: Yes (Death, Other)
  Sender: FDA-Public Use
  Company Number: 2023A056180

PATIENT
  Sex: Male
  Weight: 115.7 kg

DRUGS (1)
  1. SYMBICORT [Suspect]
     Active Substance: BUDESONIDE\FORMOTEROL FUMARATE DIHYDRATE
     Indication: Chronic obstructive pulmonary disease
     Dosage: 160 UG/MG BID160UG/MG TWO TIMES A DAY
     Route: 055

REACTIONS (12)
  - Renal failure [Fatal]
  - Cardiac failure congestive [Unknown]
  - Urine output decreased [Unknown]
  - Full blood count abnormal [Unknown]
  - Anaemia [Unknown]
  - Urinary retention [Unknown]
  - Fluid retention [Unknown]
  - Generalised oedema [Unknown]
  - Chromaturia [Unknown]
  - Pulmonary congestion [Unknown]
  - Asthenia [Unknown]
  - Productive cough [Unknown]
